FAERS Safety Report 16728925 (Version 1)
Quarter: 2019Q3

REPORT INFORMATION
  Report Type: Spontaneous
  Country: IT (occurrence: IT)
  Receive Date: 20190822
  Receipt Date: 20190822
  Transmission Date: 20191005
  Serious: Yes (Death, Hospitalization, Other)
  Sender: FDA-Public Use
  Company Number: IT-SA-2019SA230131

PATIENT
  Age: 70 Year
  Sex: Male

DRUGS (1)
  1. BCG FOR IMMUNOTHERAPY [Suspect]
     Active Substance: BACILLUS CALMETTE-GUERIN ANTIGEN, UNSPECIFIED SUBSTRAIN
     Indication: BLADDER CANCER
     Dosage: UNK
     Route: 043

REACTIONS (12)
  - Abdominal pain [Fatal]
  - Aortoenteric fistula [Fatal]
  - Intestinal ischaemia [Fatal]
  - Infective aneurysm [Fatal]
  - Pyrexia [Fatal]
  - White blood cell count increased [Fatal]
  - Myocardial ischaemia [Fatal]
  - Hyperlipidaemia [Fatal]
  - Iatrogenic injury [Fatal]
  - Haematemesis [Fatal]
  - Hypertension [Fatal]
  - Shock [Fatal]
